FAERS Safety Report 8103407-4 (Version None)
Quarter: 2012Q1

REPORT INFORMATION
  Report Type: 
  Country: None (occurrence: None)
  Receive Date: 20120127
  Receipt Date: 20120119
  Transmission Date: 20120608
  Serious: Yes (Hospitalization)
  Sender: FDA-Public Use
  Company Number: None

PATIENT
  Age: 69 Year
  Sex: Male

DRUGS (1)
  1. NASONEX [Suspect]
     Indication: NASOPHARYNGITIS
     Dosage: 2 DF; BID; NAS
     Route: 045
     Dates: start: 20110411, end: 20110411

REACTIONS (2)
  - MALAISE [None]
  - OFF LABEL USE [None]
